FAERS Safety Report 7390437-3 (Version None)
Quarter: 2011Q2

REPORT INFORMATION
  Report Type: 
  Country: None (occurrence: None)
  Receive Date: 20110401
  Receipt Date: 20110323
  Transmission Date: 20111010
  Serious: Yes (Hospitalization)
  Sender: FDA-Public Use
  Company Number: FR-GENENTECH-287664

PATIENT
  Sex: Female

DRUGS (6)
  1. PARACETAMOL [Concomitant]
     Indication: PRODUCT USED FOR UNKNOWN INDICATION
     Dosage: 1000 MG, UNK
  2. IMMUNE GLOBULIN NOS [Concomitant]
     Indication: IDIOPATHIC THROMBOCYTOPENIC PURPURA
     Dosage: 4.5 MG, UNK
     Route: 042
     Dates: start: 20090630, end: 20090630
  3. PLATELETS [Concomitant]
     Indication: HAEMORRHAGE
     Dosage: UNK
     Route: 042
     Dates: start: 20090705
  4. DEXCHLORPHENIRAMINE MALEATE [Concomitant]
     Indication: PRODUCT USED FOR UNKNOWN INDICATION
     Dosage: 5 MG, UNK
  5. MABTHERA [Suspect]
     Indication: IDIOPATHIC THROMBOCYTOPENIC PURPURA
     Dosage: 600 MG, UNK
     Route: 042
     Dates: start: 20090710, end: 20090717
  6. TARDYFERON [Concomitant]
     Indication: IRON DEFICIENCY
     Dosage: UNK
     Route: 048
     Dates: start: 20090626

REACTIONS (1)
  - SERUM SICKNESS [None]
